FAERS Safety Report 7053360-X (Version None)
Quarter: 2010Q4

REPORT INFORMATION
  Report Type: 
  Country: None (occurrence: None)
  Receive Date: 20101014
  Receipt Date: 20100930
  Transmission Date: 20110411
  Serious: Yes (Death)
  Sender: FDA-Public Use
  Company Number: WAES 1010USA00588

PATIENT

DRUGS (1)
  1. PRIMAXIN [Suspect]
     Indication: PNEUMONIA
     Dosage: IV
     Route: 042

REACTIONS (1)
  - THROMBOTIC THROMBOCYTOPENIC PURPURA [None]
